FAERS Safety Report 7728160-5 (Version None)
Quarter: 2011Q3

REPORT INFORMATION
  Report Type: 
  Country: None (occurrence: None)
  Receive Date: 20110905
  Receipt Date: 20110825
  Transmission Date: 20111222
  Serious: Yes (Other)
  Sender: FDA-Public Use
  Company Number: IT-BRISTOL-MYERS SQUIBB COMPANY-16010589

PATIENT
  Age: 65 Year
  Sex: Male

DRUGS (4)
  1. ASPIRIN [Concomitant]
     Dates: start: 20041227, end: 20110221
  2. SAXAGLIPTIN [Suspect]
     Indication: TYPE 2 DIABETES MELLITUS
     Dosage: INTERRUPTED ON 21FEB11
     Route: 048
     Dates: start: 20100119
  3. GLIMEPIRIDE [Concomitant]
     Dates: start: 20040101, end: 20110221
  4. METFORMIN HCL [Concomitant]
     Dates: start: 20040101, end: 20110221

REACTIONS (1)
  - TRANSIENT ISCHAEMIC ATTACK [None]
